FAERS Safety Report 5482830-0 (Version None)
Quarter: 2007Q4

REPORT INFORMATION
  Report Type: 
  Country: None (occurrence: None)
  Receive Date: 20071011
  Receipt Date: 20071002
  Transmission Date: 20080405
  Serious: Yes (Other)
  Sender: FDA-Public Use
  Company Number: US-PFIZER INC-2007083421

PATIENT
  Sex: Female
  Weight: 70.454 kg

DRUGS (2)
  1. CHANTIX [Suspect]
     Indication: SMOKING CESSATION THERAPY
     Dates: start: 20070830, end: 20071002
  2. SIMVASTATIN [Concomitant]

REACTIONS (11)
  - ABNORMAL DREAMS [None]
  - ANXIETY [None]
  - CHANGE OF BOWEL HABIT [None]
  - CRYING [None]
  - DRUG INEFFECTIVE [None]
  - FLATULENCE [None]
  - HEADACHE [None]
  - HOT FLUSH [None]
  - NAUSEA [None]
  - PANIC ATTACK [None]
  - TREMOR [None]
